FAERS Safety Report 7792017-4 (Version None)
Quarter: 2011Q4

REPORT INFORMATION
  Report Type: 
  Country: None (occurrence: None)
  Receive Date: 20111003
  Receipt Date: 20110930
  Transmission Date: 20120403
  Serious: Yes (Other)
  Sender: FDA-Public Use
  Company Number: US-PFIZER INC-2011234267

PATIENT
  Sex: Female
  Weight: 97.506 kg

DRUGS (3)
  1. PROZAC [Concomitant]
     Dosage: UNK
  2. PROVERA [Concomitant]
     Dosage: UNK
  3. CHANTIX [Suspect]
     Indication: SMOKING CESSATION THERAPY
     Dosage: 0.5 MG, 1X/DAY
     Route: 048
     Dates: end: 20110829

REACTIONS (3)
  - FEELING ABNORMAL [None]
  - FEAR [None]
  - HEART RATE INCREASED [None]
